FAERS Safety Report 5022975-2 (Version None)
Quarter: 2006Q2

REPORT INFORMATION
  Report Type: 
  Country: None (occurrence: None)
  Receive Date: 20060426
  Receipt Date: 20060320
  Transmission Date: 20061013
  Serious: Yes (Other)
  Sender: FDA-Public Use
  Company Number: 2006040322

PATIENT
  Age: 72 Year
  Sex: Female
  Weight: 40.8237 kg

DRUGS (5)
  1. LYRICA [Suspect]
     Indication: ARTHRALGIA
     Dosage: (75 MG, UNKNOWN)
     Dates: start: 20060319, end: 20060319
  2. LYRICA [Suspect]
     Indication: FIBROMYALGIA
     Dosage: (75 MG, UNKNOWN)
     Dates: start: 20060319, end: 20060319
  3. FIORICET [Concomitant]
  4. KLONOPIN [Concomitant]
  5. DEMEROL [Concomitant]

REACTIONS (6)
  - ABDOMINAL PAIN [None]
  - ASTHENIA [None]
  - DIARRHOEA [None]
  - FATIGUE [None]
  - GASTROINTESTINAL MOTILITY DISORDER [None]
  - GASTROINTESTINAL PAIN [None]
